FAERS Safety Report 11784835 (Version 1)
Quarter: 2015Q4

REPORT INFORMATION
  Report Type: Report from Study
  Country: US (occurrence: US)
  Receive Date: 20151130
  Receipt Date: 20151130
  Transmission Date: 20160305
  Serious: No
  Sender: FDA-Public Use
  Company Number: US-AMGEN-USASL2015125087

PATIENT
  Sex: Female

DRUGS (1)
  1. ENBREL [Suspect]
     Active Substance: ETANERCEPT
     Indication: ANKYLOSING SPONDYLITIS
     Dosage: UNK UNK, UNK
     Route: 065
     Dates: start: 2015

REACTIONS (7)
  - Contusion [Unknown]
  - Inflammation [Unknown]
  - Erythema [Unknown]
  - Feeling abnormal [Unknown]
  - Skin discolouration [Unknown]
  - Psoriasis [Unknown]
  - Blister [Unknown]

NARRATIVE: CASE EVENT DATE: 201511
